FAERS Safety Report 16837636 (Version 1)
Quarter: 2019Q3

REPORT INFORMATION
  Report Type: Spontaneous
  Country: ES (occurrence: ES)
  Receive Date: 20190923
  Receipt Date: 20190923
  Transmission Date: 20191005
  Serious: Yes (Other)
  Sender: FDA-Public Use
  Company Number: ES-ABBVIE-19K-144-2928795-00

PATIENT
  Sex: Male
  Weight: 64.8 kg

DRUGS (2)
  1. IMUREL [Concomitant]
     Active Substance: AZATHIOPRINE SODIUM
     Indication: PRODUCT USED FOR UNKNOWN INDICATION
     Dosage: 3 PILLS
  2. HUMIRA [Suspect]
     Active Substance: ADALIMUMAB
     Indication: CROHN^S DISEASE
     Route: 058
     Dates: start: 2015

REACTIONS (18)
  - Depressed mood [Unknown]
  - Arthralgia [Unknown]
  - Crepitations [Unknown]
  - Gastric disorder [Unknown]
  - Apathy [Unknown]
  - Joint warmth [Unknown]
  - Cervical spinal stenosis [Unknown]
  - Regurgitation [Unknown]
  - Crohn^s disease [Unknown]
  - Arthralgia [Unknown]
  - Suicidal ideation [Unknown]
  - Choking sensation [Unknown]
  - Pain in extremity [Unknown]
  - Feeling hot [Unknown]
  - Fatigue [Unknown]
  - Loss of personal independence in daily activities [Unknown]
  - Oesophageal disorder [Unknown]
  - Depressive symptom [Unknown]

NARRATIVE: CASE EVENT DATE: 2018
